FAERS Safety Report 5216684-4 (Version None)
Quarter: 2006Q4

REPORT INFORMATION
  Report Type: 
  Country: None (occurrence: None)
  Receive Date: 20061130
  Receipt Date: 20060413
  Transmission Date: 20070319
  Serious: Yes (Hospitalization)
  Sender: FDA-Public Use
  Company Number: US_0509121998

PATIENT
  Sex: Male
  Weight: 102 kg

DRUGS (1)
  1. ZYPREXA [Suspect]
     Dates: start: 19930601

REACTIONS (2)
  - DIABETES MELLITUS [None]
  - PANCREATITIS [None]
